FAERS Safety Report 20813047 (Version 2)
Quarter: 2022Q2

REPORT INFORMATION
  Report Type: Report from Study
  Country: AT (occurrence: AT)
  Receive Date: 20220511
  Receipt Date: 20220526
  Transmission Date: 20220720
  Serious: Yes (Other)
  Sender: FDA-Public Use
  Company Number: AT-CELLTRION INC.-2022AT005876

PATIENT

DRUGS (67)
  1. TRASTUZUMAB [Suspect]
     Active Substance: TRASTUZUMAB
     Indication: HER2 positive breast cancer
     Dosage: 8 MG/KG, EVERY 3 WEEKS
     Route: 041
     Dates: start: 20170112, end: 20170112
  2. TRASTUZUMAB [Suspect]
     Active Substance: TRASTUZUMAB
     Dosage: 6 MG/KG, EVERY 3 WEEKS
     Route: 041
     Dates: start: 20170227, end: 20180108
  3. TRASTUZUMAB [Suspect]
     Active Substance: TRASTUZUMAB
     Dosage: 8 MG/KG, EVERY 3 WEEKS
     Route: 041
     Dates: start: 20161020, end: 20161020
  4. TRASTUZUMAB [Suspect]
     Active Substance: TRASTUZUMAB
     Dosage: 6 MG/KG, EVERY 3 WEEKS
     Route: 041
     Dates: start: 20190906, end: 20210409
  5. PERTUZUMAB [Suspect]
     Active Substance: PERTUZUMAB
     Indication: HER2 positive breast cancer
     Dosage: 840 MG, 3/WEEK
     Route: 042
     Dates: start: 20161020, end: 20161020
  6. PERTUZUMAB [Suspect]
     Active Substance: PERTUZUMAB
     Dosage: 420 MG, 3/WEEK
     Route: 042
     Dates: start: 20170227, end: 20180108
  7. PERTUZUMAB [Suspect]
     Active Substance: PERTUZUMAB
     Dosage: 420 MG, 3/WEEK
     Route: 042
     Dates: start: 20190906, end: 20210409
  8. PERTUZUMAB [Suspect]
     Active Substance: PERTUZUMAB
     Dosage: 840 MG, 3/WEEK
     Route: 042
     Dates: start: 20170112, end: 20170112
  9. DOCETAXEL [Suspect]
     Active Substance: DOCETAXEL
     Indication: HER2 positive breast cancer
     Dosage: 75 MG/M2, 3/WEEK
     Route: 042
     Dates: start: 20161111, end: 20161111
  10. DOCETAXEL [Suspect]
     Active Substance: DOCETAXEL
     Dosage: 100 MG/M2, 3/WEEK
     Route: 042
     Dates: start: 20170112, end: 20170202
  11. DOCETAXEL [Suspect]
     Active Substance: DOCETAXEL
     Dosage: 75 MG/M2, 3/WEEK
     Route: 042
     Dates: start: 20161020, end: 20161020
  12. DOCETAXEL [Suspect]
     Active Substance: DOCETAXEL
     Dosage: 100 MG/M2, 3/WEEK
     Route: 042
     Dates: start: 20161201, end: 20161222
  13. CYCLOPHOSPHAMIDE [Suspect]
     Active Substance: CYCLOPHOSPHAMIDE
     Indication: HER2 positive breast cancer
     Dosage: 500 MG/M2
     Route: 042
     Dates: start: 20161005, end: 20161005
  14. CAPECITABINE [Suspect]
     Active Substance: CAPECITABINE
     Indication: HER2 positive breast cancer
     Dosage: 1500 MG; DAY 1 - DAY 14, TWICE DAILY
     Route: 048
     Dates: start: 20210430, end: 20210903
  15. CAPECITABINE [Suspect]
     Active Substance: CAPECITABINE
     Dosage: 1000 MG; DAY 1 - DAY 14, TWICE DAILY
     Route: 048
     Dates: start: 20210904
  16. TUCATINIB [Suspect]
     Active Substance: TUCATINIB
     Indication: HER2 positive breast cancer
     Dosage: 300 MG, 0.5/DAY
     Route: 048
     Dates: start: 20210430
  17. ADO-TRASTUZUMAB EMTANSINE [Suspect]
     Active Substance: ADO-TRASTUZUMAB EMTANSINE
     Indication: HER2 positive breast cancer
     Dosage: 3.6 MG/KG, 3/WEEK
     Route: 042
     Dates: start: 20180205, end: 20190816
  18. EPIRUBICIN [Suspect]
     Active Substance: EPIRUBICIN
     Indication: HER2 positive breast cancer
     Dosage: 100 MG/M2
     Route: 042
     Dates: start: 20161005, end: 20161005
  19. IMODIUM [Concomitant]
     Active Substance: LOPERAMIDE HYDROCHLORIDE
     Dosage: 2 MG
     Route: 048
     Dates: start: 20171106, end: 20171127
  20. XGEVA [Concomitant]
     Active Substance: DENOSUMAB
     Indication: Prophylaxis
     Dosage: 120 MG, EVERY 1 MONTH; ONGOING = CHECKED
     Route: 058
     Dates: start: 20161201
  21. LEVETIRACETAM [Concomitant]
     Active Substance: LEVETIRACETAM
     Dosage: 750 MG, 0.5/DAY
     Route: 048
     Dates: start: 20220201
  22. PERFALGAN [Concomitant]
     Active Substance: ACETAMINOPHEN
     Dosage: 1 G, QD
     Route: 042
     Dates: start: 20161208, end: 20161212
  23. XARELTO [Concomitant]
     Active Substance: RIVAROXABAN
     Indication: Thrombosis prophylaxis
     Dosage: 10 MG, QD
     Route: 048
     Dates: start: 20161026, end: 201612
  24. OPTIFIBRE [Concomitant]
     Indication: Prophylaxis
     Dosage: UNK
     Route: 048
     Dates: start: 20161102, end: 201611
  25. KCL [Concomitant]
     Active Substance: POTASSIUM CHLORIDE
     Indication: Prophylaxis
     Dosage: 1200 MG, 0.5/DAY
     Route: 048
     Dates: start: 20161117, end: 201702
  26. METOCLOPRAMIDE [Concomitant]
     Active Substance: METOCLOPRAMIDE
     Indication: Prophylaxis of nausea and vomiting
     Dosage: 10 MG, 3/WEEK, ONGOING = CHECKED
     Route: 042
     Dates: start: 20180205, end: 20180816
  27. HALDOL [Concomitant]
     Active Substance: HALOPERIDOL
     Indication: Prophylaxis of nausea and vomiting
     Dosage: 4 [DRP], 0.5/DAY
     Route: 048
     Dates: start: 201702
  28. ZOFRAN [Concomitant]
     Active Substance: ONDANSETRON HYDROCHLORIDE
     Indication: Prophylaxis of nausea and vomiting
     Dosage: 8 MG
     Route: 048
     Dates: start: 20161123, end: 20170204
  29. FILGRASTIM [Concomitant]
     Active Substance: FILGRASTIM
     Dosage: 48 [IU], 1/WEEK
     Route: 058
     Dates: start: 20161208, end: 20161211
  30. HYDROMORPHONE HYDROCHLORIDE [Concomitant]
     Active Substance: HYDROMORPHONE HYDROCHLORIDE
     Indication: Pain prophylaxis
     Dosage: ONGOING = CHECKED
     Dates: start: 20210309
  31. HYDROMORPHONE HYDROCHLORIDE [Concomitant]
     Active Substance: HYDROMORPHONE HYDROCHLORIDE
     Dosage: 2 MG
     Route: 048
     Dates: start: 20190816, end: 20210326
  32. HYDROMORPHONE HYDROCHLORIDE [Concomitant]
     Active Substance: HYDROMORPHONE HYDROCHLORIDE
     Dosage: 2 MG, 0.5/DAY
     Route: 048
     Dates: start: 20210326, end: 20210409
  33. HYDROMORPHONE HYDROCHLORIDE [Concomitant]
     Active Substance: HYDROMORPHONE HYDROCHLORIDE
     Dosage: 1.3 MG
     Route: 048
     Dates: start: 201706
  34. HYDROMORPHONE HYDROCHLORIDE [Concomitant]
     Active Substance: HYDROMORPHONE HYDROCHLORIDE
     Dosage: 4 MG, 0.5/DAY
     Route: 048
     Dates: start: 20210410
  35. LIPEGFILGRASTIM [Concomitant]
     Active Substance: LIPEGFILGRASTIM
     Indication: Prophylaxis
     Dosage: 6 MG, 3/WEEK
     Route: 058
     Dates: start: 20170113, end: 20170203
  36. METOCLOPRAMIDE HYDROCHLORIDE [Concomitant]
     Active Substance: METOCLOPRAMIDE HYDROCHLORIDE
     Indication: Nausea
     Dosage: 3 AMPULE
     Route: 042
     Dates: start: 20161113
  37. LASIX [Concomitant]
     Active Substance: FUROSEMIDE
     Indication: Prophylaxis
     Dosage: 40 MG, QD
     Route: 042
     Dates: start: 20161112, end: 20161114
  38. LASIX [Concomitant]
     Active Substance: FUROSEMIDE
     Dosage: 30 MG, QD
     Route: 048
     Dates: start: 20161114, end: 201611
  39. HALCION [Concomitant]
     Active Substance: TRIAZOLAM
     Indication: Sleep disorder
     Dosage: 0.25 MG, QD
     Route: 048
     Dates: start: 2016, end: 201702
  40. DEXIBUPROFEN [Concomitant]
     Active Substance: DEXIBUPROFEN
     Indication: Pain prophylaxis
     Dosage: 400 MG, 0.33/DAY, ONGOING = CHECKED
     Route: 048
     Dates: start: 20210312
  41. VITAMINS WITH MINERALS [Concomitant]
     Active Substance: MINERALS\VITAMINS
     Indication: Osteoporosis prophylaxis
     Dosage: 1 DF, 0.5/DAY, ONGOING = CHECKED
     Route: 048
     Dates: start: 20161112
  42. DEXAMETHASONE [Concomitant]
     Active Substance: DEXAMETHASONE
     Indication: Prophylaxis
     Dosage: 8 MG, 0.5/DAY
     Route: 048
     Dates: start: 20161202, end: 20161203
  43. DEXAMETHASONE [Concomitant]
     Active Substance: DEXAMETHASONE
     Dosage: 8 MG, QD
     Route: 048
     Dates: start: 20180117, end: 20180122
  44. ARANESP [Concomitant]
     Active Substance: DARBEPOETIN ALFA
     Indication: Anaemia prophylaxis
     Dosage: 150 MICROGRAM, MONTHLY
     Route: 058
     Dates: start: 20161201, end: 201701
  45. RAMIPRIL [Concomitant]
     Active Substance: RAMIPRIL
     Dosage: 2.5, 0.5/DAY
     Route: 048
     Dates: start: 20161112, end: 20161221
  46. RAMIPRIL [Concomitant]
     Active Substance: RAMIPRIL
     Dosage: 5 MG, 0.5/DAY
     Route: 048
     Dates: start: 20161222, end: 20170226
  47. RAMIPRIL [Concomitant]
     Active Substance: RAMIPRIL
     Dosage: 15 MG, QD, ONGOING = CHECKED
     Route: 048
     Dates: start: 20170227
  48. CLOBAZAM [Concomitant]
     Active Substance: CLOBAZAM
     Dosage: 0.5/DAY, 5 TABLET
     Route: 048
     Dates: start: 20220201
  49. SERTRALINE HYDROCHLORIDE [Concomitant]
     Active Substance: SERTRALINE HYDROCHLORIDE
     Dosage: 50 MG, QD
     Route: 048
     Dates: end: 201710
  50. BISOPROLOL FUMARATE [Concomitant]
     Active Substance: BISOPROLOL FUMARATE
     Dosage: 1.25 MG, QD
     Route: 048
     Dates: start: 20161117, end: 20170226
  51. GLANDOMED [Concomitant]
     Dosage: UNK
     Route: 061
     Dates: start: 20161208, end: 20161222
  52. CEOLAT [Concomitant]
     Indication: Prophylaxis of nausea and vomiting
     Dosage: 10 ML
     Route: 048
     Dates: start: 20161112, end: 201702
  53. SERTRALINE [Concomitant]
     Active Substance: SERTRALINE HYDROCHLORIDE
     Indication: Depression
     Dosage: 25 MG, QD, ONGOING = CHECKED
     Route: 048
     Dates: start: 20171016
  54. AMOXICILLIN\CLAVULANATE POTASSIUM [Concomitant]
     Active Substance: AMOXICILLIN\CLAVULANATE POTASSIUM
     Dosage: 1 G, 0.5/DAY
     Route: 048
     Dates: start: 20161212, end: 20161216
  55. PANTOPRAZOLE SODIUM [Concomitant]
     Active Substance: PANTOPRAZOLE SODIUM
     Dosage: 40 MG, 0.5/DAY
     Route: 048
     Dates: start: 20161018, end: 20161030
  56. PANTOPRAZOLE SODIUM [Concomitant]
     Active Substance: PANTOPRAZOLE SODIUM
     Dosage: 40 MG, QD
     Route: 048
     Dates: start: 20161031, end: 20161123
  57. PANTOPRAZOLE SODIUM [Concomitant]
     Active Substance: PANTOPRAZOLE SODIUM
     Dosage: 40 MG, 0.5/DAY
     Route: 042
     Dates: start: 20161010, end: 20161018
  58. MOVICOL [Concomitant]
     Active Substance: POLYETHYLENE GLYCOL 3350\POTASSIUM CHLORIDE\SODIUM BICARBONATE\SODIUM CHLORIDE
     Indication: Constipation prophylaxis
     Dosage: UNK
     Route: 048
     Dates: start: 201706
  59. SUCRALAN [Concomitant]
     Indication: Prophylaxis
     Dosage: ONGOING = NOT CHECKED
     Dates: start: 20161215
  60. SUCRALAN [Concomitant]
     Dosage: 5 ML, ONGOING = NOT CHECKED
     Route: 048
     Dates: start: 201612, end: 20161212
  61. ONDANSETRON HYDROCHLORIDE [Concomitant]
     Active Substance: ONDANSETRON HYDROCHLORIDE
     Indication: Nausea
     Dosage: 8 MG, ONGOING = CHECKED
     Route: 048
     Dates: start: 20180505
  62. TAZOBACTAM [Concomitant]
     Active Substance: TAZOBACTAM
     Dosage: 4.5 G, QD
     Route: 042
     Dates: start: 20161208, end: 20161212
  63. ALPRAZOLAM [Concomitant]
     Active Substance: ALPRAZOLAM
     Dosage: 0.5 MG
     Route: 048
     Dates: start: 20161117
  64. BISOPROLOL FUMARATE [Concomitant]
     Active Substance: BISOPROLOL FUMARATE
     Indication: Prophylaxis
     Dosage: 2.5 MG, EVERY 0.5 DAY; ONGOING = CHECKED
     Route: 048
     Dates: start: 20170227
  65. DEXAMETHASONE [Concomitant]
     Active Substance: DEXAMETHASONE
     Dosage: 8 MG, 1 DAY
     Route: 048
     Dates: start: 20180817, end: 20180831
  66. ENTEROBENE [Concomitant]
     Indication: Diarrhoea
     Dosage: 2 MG, ONGOING = CHECKED
     Route: 048
     Dates: start: 20171127
  67. FENTANYL [Concomitant]
     Active Substance: FENTANYL
     Indication: Pain prophylaxis
     Dosage: 25 UG, 3/DAY
     Route: 062
     Dates: start: 201706

REACTIONS (1)
  - Hemianopia [Recovered/Resolved]

NARRATIVE: CASE EVENT DATE: 20210924
